FAERS Safety Report 11404174 (Version 1)
Quarter: 2015Q3

REPORT INFORMATION
  Report Type: Spontaneous
  Country: US (occurrence: None)
  Receive Date: 20150820
  Receipt Date: 20150820
  Transmission Date: 20151125
  Serious: No
  Sender: FDA-Public Use
  Company Number: None

PATIENT
  Age: 52 Year
  Sex: Female
  Weight: 94.35 kg

DRUGS (4)
  1. NEXIUM [Concomitant]
     Active Substance: ESOMEPRAZOLE MAGNESIUM
  2. MAGNESIUM [Concomitant]
     Active Substance: MAGNESIUM
  3. TRIAMT/HCTZ 37.5-25 MG [Suspect]
     Active Substance: HYDROCHLOROTHIAZIDE\TRIAMTERENE
     Indication: OEDEMA PERIPHERAL
     Route: 048
     Dates: start: 20150810, end: 20150815
  4. TRIAMT/HCTZ 37.5-25 MG [Suspect]
     Active Substance: HYDROCHLOROTHIAZIDE\TRIAMTERENE
     Indication: HYPERTENSION
     Route: 048
     Dates: start: 20150810, end: 20150815

REACTIONS (12)
  - Nausea [None]
  - Depression [None]
  - Decreased appetite [None]
  - Sleep disorder [None]
  - Thirst [None]
  - Dizziness [None]
  - Amnesia [None]
  - Hypersensitivity [None]
  - Anxiety [None]
  - Drug level increased [None]
  - Dysarthria [None]
  - Visual impairment [None]

NARRATIVE: CASE EVENT DATE: 20150815
